FAERS Safety Report 5095914-6 (Version None)
Quarter: 2006Q3

REPORT INFORMATION
  Report Type: 
  Country: None (occurrence: None)
  Receive Date: 20060905
  Receipt Date: 20060823
  Transmission Date: 20061208
  Serious: Yes (Hospitalization)
  Sender: FDA-Public Use
  Company Number: US-BRISTOL-MYERS SQUIBB COMPANY-13489158

PATIENT
  Age: 58 Year
  Sex: Male

DRUGS (10)
  1. ORENCIA [Suspect]
     Indication: RHEUMATOID ARTHRITIS
     Route: 042
     Dates: start: 20060728
  2. FLORINEF [Concomitant]
  3. PANCREASE [Concomitant]
  4. OXYCODONE HCL [Concomitant]
  5. PREDNISONE TAB [Concomitant]
  6. MS CONTIN [Concomitant]
  7. CENTRUM SILVER [Concomitant]
  8. ADVIL [Concomitant]
  9. PRILOSEC [Concomitant]
  10. HUMULIN 70/30 [Concomitant]

REACTIONS (1)
  - HYPOGLYCAEMIA [None]
